FAERS Safety Report 15689684 (Version 2)
Quarter: 2018Q4

REPORT INFORMATION
  Report Type: Spontaneous
  Country: US (occurrence: US)
  Receive Date: 20181205
  Receipt Date: 20181205
  Transmission Date: 20190205
  Serious: Yes (Other)
  Sender: FDA-Public Use
  Company Number: US-NOVOPROD-600307

PATIENT
  Age: 70 Year
  Sex: Female

DRUGS (4)
  1. NOVOLIN R [Suspect]
     Active Substance: INSULIN HUMAN
     Indication: TYPE 2 DIABETES MELLITUS
     Dosage: 30 U, TID
     Route: 058
     Dates: start: 201803
  2. NOVOLIN N [Suspect]
     Active Substance: INSULIN HUMAN
     Indication: TYPE 2 DIABETES MELLITUS
     Dosage: 30 U, TID
     Route: 058
     Dates: start: 201803
  3. NOVOLIN N [Suspect]
     Active Substance: INSULIN HUMAN
     Dosage: 35 U, UNK
     Route: 058
     Dates: start: 2018, end: 2018
  4. NOVOLIN R [Suspect]
     Active Substance: INSULIN HUMAN
     Dosage: 35 U, UNK
     Route: 058
     Dates: start: 2018, end: 2018

REACTIONS (4)
  - Blood glucose increased [Not Recovered/Not Resolved]
  - Hyperphagia [Not Recovered/Not Resolved]
  - Insomnia [Not Recovered/Not Resolved]
  - Drug ineffective [Not Recovered/Not Resolved]

NARRATIVE: CASE EVENT DATE: 201803
